FAERS Safety Report 9064654 (Version 1)
Quarter: 2013Q1

REPORT INFORMATION
  Report Type: Report from Study
  Country: US (occurrence: US)
  Receive Date: 20130128
  Receipt Date: 20130128
  Transmission Date: 20140127
  Serious: No
  Sender: FDA-Public Use
  Company Number: US-ABBOTT-12P-163-0897411-00

PATIENT
  Age: 33 Year
  Sex: Female

DRUGS (5)
  1. HUMIRA 40 MG/0.8 ML PEN [Suspect]
     Indication: CROHN^S DISEASE
     Dates: start: 201111
  2. PENTASA [Concomitant]
     Indication: CROHN^S DISEASE
     Route: 048
  3. PRILOSEC [Concomitant]
     Indication: CROHN^S DISEASE
     Route: 048
  4. ALLEGRA [Concomitant]
     Indication: HYPERSENSITIVITY
     Route: 048
  5. CLARITIN [Concomitant]
     Indication: HYPERSENSITIVITY
     Route: 048

REACTIONS (2)
  - Nausea [Recovering/Resolving]
  - Vomiting [Recovering/Resolving]
